FAERS Safety Report 5729460-0 (Version None)
Quarter: 2008Q2

REPORT INFORMATION
  Report Type: 
  Country: None (occurrence: None)
  Receive Date: 20080506
  Receipt Date: 20080422
  Transmission Date: 20081010
  Serious: Yes (Hospitalization)
  Sender: FDA-Public Use
  Company Number: US-ELI_LILLY_AND_COMPANY-US200804006874

PATIENT
  Sex: Male

DRUGS (7)
  1. HUMALOG [Suspect]
     Dosage: UNK, AS NEEDED
  2. HUMALOG [Suspect]
     Dosage: 16 U, UNK
     Dates: start: 20080418, end: 20080418
  3. HUMALOG [Suspect]
     Dosage: 15 U, UNK
     Dates: start: 20080418, end: 20080418
  4. HUMALOG [Suspect]
     Dosage: 16 U, UNK
  5. HUMULIN R [Suspect]
     Dosage: 10 U, UNK
  6. LANTUS [Concomitant]
     Dosage: UNK, EACH EVENING
  7. FLADEX [Concomitant]

REACTIONS (5)
  - BLOOD GLUCOSE DECREASED [None]
  - BLOOD GLUCOSE INCREASED [None]
  - CATARACT [None]
  - CORONARY ARTERY BYPASS [None]
  - DRUG INEFFECTIVE [None]
